FAERS Safety Report 5637629-9 (Version None)
Quarter: 2008Q1

REPORT INFORMATION
  Report Type: 
  Country: None (occurrence: None)
  Receive Date: 20080225
  Receipt Date: 20080225
  Transmission Date: 20080703
  Serious: Yes (Hospitalization)
  Sender: FDA-Public Use
  Company Number: BE-ABBOTT-08P-013-0434103-00

PATIENT
  Sex: Male

DRUGS (5)
  1. NORVIR [Suspect]
     Indication: HIV INFECTION
     Dates: start: 20071224
  2. FOSAMPRENAVIR [Concomitant]
     Indication: HIV INFECTION
     Dates: start: 20071224
  3. TENOFOVIR DISOPROXIL FUMARATE [Concomitant]
     Indication: HIV INFECTION
     Dates: start: 20071224
  4. LAMIVUDINE [Concomitant]
     Indication: HIV INFECTION
     Dates: start: 20071224
  5. ABACAVIR SULFATE W/LAMIVUDINE [Concomitant]
     Indication: HIV INFECTION
     Dates: start: 20071224

REACTIONS (1)
  - CARDIAC FAILURE [None]
